FAERS Safety Report 12893098 (Version 1)
Quarter: 2016Q4

REPORT INFORMATION
  Report Type: Spontaneous
  Country: PE (occurrence: PE)
  Receive Date: 20161028
  Receipt Date: 20161028
  Transmission Date: 20170207
  Serious: Yes (Other)
  Sender: FDA-Public Use
  Company Number: PE-PFIZER INC-2016263709

PATIENT
  Age: 64 Year
  Sex: Female

DRUGS (2)
  1. XALATAN [Suspect]
     Active Substance: LATANOPROST
     Indication: GLAUCOMA
     Dosage: 1 DROP ON EACH EYE AT NIGHT
     Route: 047
  2. SYSTANE (HYPROMELLOSE 2910 (4000 MPA.S)) [Concomitant]
     Active Substance: HYPROMELLOSE 2910 (4000 MPA.S)
     Dosage: UNK

REACTIONS (7)
  - Intraocular pressure increased [Unknown]
  - Abdominal neoplasm [Recovered/Resolved]
  - Malaise [Unknown]
  - Glaucoma [Unknown]
  - Gallbladder disorder [Not Recovered/Not Resolved]
  - Large intestinal haemorrhage [Recovered/Resolved]
  - Cataract [Unknown]
